FAERS Safety Report 9382536 (Version 2)
Quarter: 2013Q3

REPORT INFORMATION
  Report Type: Spontaneous
  Country: US (occurrence: US)
  Receive Date: 20130703
  Receipt Date: 20130711
  Transmission Date: 20140515
  Serious: Yes (Hospitalization)
  Sender: FDA-Public Use
  Company Number: CHPA2013US010626

PATIENT
  Age: 86 Year
  Sex: Male

DRUGS (5)
  1. EXCEDRIN ES BACK + BODY [Suspect]
     Indication: MUSCULOSKELETAL STIFFNESS
     Dosage: 2 DF, PRN
     Route: 048
     Dates: end: 201202
  2. EXCEDRIN ES BACK + BODY [Suspect]
     Indication: BACK PAIN
  3. CELEBREX [Concomitant]
     Indication: JOINT INJURY
     Dosage: UNK, PRN
  4. GABAPENTIN [Concomitant]
     Indication: SCIATIC NERVE INJURY
     Dosage: 1 DF, BID
     Dates: start: 2007
  5. MULTIVITAMIN//VITAMINS NOS [Concomitant]
     Dosage: UNK, UNK

REACTIONS (9)
  - Ulcer haemorrhage [Recovered/Resolved]
  - Full blood count decreased [Recovered/Resolved]
  - Dizziness [Recovered/Resolved]
  - Faeces discoloured [Recovered/Resolved]
  - Malaise [Recovered/Resolved]
  - Dehydration [Recovered/Resolved]
  - Diarrhoea [Recovered/Resolved]
  - Heart rate decreased [Recovered/Resolved]
  - Off label use [Unknown]
